FAERS Safety Report 11772440 (Version 2)
Quarter: 2017Q2

REPORT INFORMATION
  Report Type: Spontaneous
  Country: US (occurrence: US)
  Receive Date: 20151124
  Receipt Date: 20170609
  Transmission Date: 20170829
  Serious: Yes (Hospitalization, Other)
  Sender: FDA-Public Use
  Company Number: US-PFIZER INC-2015391219

PATIENT
  Age: 58 Year
  Sex: Male
  Weight: 136 kg

DRUGS (8)
  1. LYRICA [Suspect]
     Active Substance: PREGABALIN
     Indication: DIABETIC NEUROPATHY
  2. INSULIN [Concomitant]
     Active Substance: INSULIN NOS
  3. COREG [Concomitant]
     Active Substance: CARVEDILOL
  4. VALSARTAN. [Concomitant]
     Active Substance: VALSARTAN
  5. COUMADIN [Concomitant]
     Active Substance: WARFARIN SODIUM
  6. PROGRAF [Concomitant]
     Active Substance: TACROLIMUS\TACROLIMUS ANHYDROUS
  7. LYRICA [Suspect]
     Active Substance: PREGABALIN
     Indication: NEURALGIA
     Dosage: 225 MG, DAILY (ONE IN MORNING, TWO AT NIGHT)
     Route: 048
  8. LYRICA [Suspect]
     Active Substance: PREGABALIN
     Indication: TYPE 2 DIABETES MELLITUS
     Dosage: 75 MG, 1X/DAY
     Route: 048

REACTIONS (12)
  - Arthralgia [Unknown]
  - Body height decreased [Unknown]
  - Pain in extremity [Unknown]
  - Weight increased [Unknown]
  - Peripheral swelling [Unknown]
  - Immobile [Unknown]
  - Cyst [Unknown]
  - Red blood cell count decreased [Unknown]
  - Malignant melanoma [Unknown]
  - Malaise [Unknown]
  - Heart transplant rejection [Unknown]
  - Joint swelling [Unknown]
